FAERS Safety Report 4451802-7 (Version None)
Quarter: 2004Q3

REPORT INFORMATION
  Report Type: 
  Country: None (occurrence: None)
  Receive Date: 20040813
  Receipt Date: 20040503
  Transmission Date: 20050211
  Serious: No
  Sender: FDA-Public Use
  Company Number: S04-USA-03564-01

PATIENT
  Age: 87 Year
  Sex: Male

DRUGS (5)
  1. NAMENDA [Suspect]
     Indication: VASCULAR DEMENTIA
     Dosage: 10 MG QD PO
     Route: 048
     Dates: start: 20040420, end: 20040426
  2. NAMENDA [Suspect]
     Indication: VASCULAR DEMENTIA
     Dosage: 25 MG QD PO
     Route: 048
     Dates: start: 20040427
  3. NAMENDA [Suspect]
     Indication: VASCULAR DEMENTIA
     Dosage: 5 MG QD PO
     Route: 048
     Dates: start: 20040413, end: 20040419
  4. PAXIL [Concomitant]
  5. PLAVIX [Concomitant]

REACTIONS (3)
  - CONFUSIONAL STATE [None]
  - CONSTIPATION [None]
  - INSOMNIA [None]
